FAERS Safety Report 6107501-9 (Version None)
Quarter: 2009Q1

REPORT INFORMATION
  Report Type: 
  Country: None (occurrence: None)
  Receive Date: 20090309
  Receipt Date: 20090304
  Transmission Date: 20090719
  Serious: Yes (Other)
  Sender: FDA-Public Use
  Company Number: GB-ABBOTT-09P-167-0560734-00

PATIENT
  Age: 30 Year
  Sex: Female
  Weight: 65.8 kg

DRUGS (6)
  1. RITONAVIR SOFT GELATIN CAPSULES [Suspect]
     Indication: HIV INFECTION
  2. DARUNAVIR [Suspect]
     Indication: HIV INFECTION
  3. COMBIVIR [Suspect]
     Indication: HIV INFECTION
     Dosage: 1 TABLET BD
  4. TRUVADA [Concomitant]
     Indication: DRUG USE FOR UNKNOWN INDICATION
  5. VIRAMUNE [Concomitant]
     Indication: DRUG USE FOR UNKNOWN INDICATION
  6. FOLIC ACID [Concomitant]
     Indication: DRUG USE FOR UNKNOWN INDICATION

REACTIONS (1)
  - ABORTION SPONTANEOUS [None]
